FAERS Safety Report 6540111-8 (Version None)
Quarter: 2010Q1

REPORT INFORMATION
  Report Type: 
  Country: None (occurrence: None)
  Receive Date: 20100115
  Receipt Date: 20100111
  Transmission Date: 20100710
  Serious: Yes (Other)
  Sender: FDA-Public Use
  Company Number: US-RB-026821-09

PATIENT
  Age: 43 Year
  Sex: Female

DRUGS (3)
  1. SUBOXONE [Suspect]
     Indication: DRUG DEPENDENCE
     Route: 060
     Dates: start: 20091120
  2. SUBOXONE [Suspect]
     Route: 060
     Dates: start: 20091119, end: 20091119
  3. SUBOXONE [Suspect]
     Dosage: DOSING DETAILS UNKNOWN
     Route: 060
     Dates: start: 20091201

REACTIONS (4)
  - FATIGUE [None]
  - HALLUCINATION [None]
  - LIBIDO INCREASED [None]
  - LOSS OF CONSCIOUSNESS [None]
